FAERS Safety Report 5621270-8 (Version None)
Quarter: 2008Q1

REPORT INFORMATION
  Report Type: 
  Country: None (occurrence: None)
  Receive Date: 20080211
  Receipt Date: 20080201
  Transmission Date: 20080703
  Serious: Yes (Hospitalization)
  Sender: FDA-Public Use
  Company Number: JP-JNJFOC-20080201113

PATIENT
  Sex: Female

DRUGS (10)
  1. REMICADE [Suspect]
     Route: 042
  2. REMICADE [Suspect]
     Dosage: 10 DOSES ON UNKNOWN DATES
     Route: 042
  3. REMICADE [Suspect]
     Indication: RHEUMATOID ARTHRITIS
     Route: 042
  4. RHEUMATREX [Suspect]
     Indication: DRUG USE FOR UNKNOWN INDICATION
     Route: 048
  5. ISONIAZID [Suspect]
     Indication: ANTIBIOTIC PROPHYLAXIS
  6. RIMATIL [Concomitant]
     Route: 048
  7. AZULFIDINE EN-TABS [Concomitant]
     Route: 048
  8. THIOLA [Concomitant]
     Route: 048
  9. ADRENAL HORMONE PREPARATION [Concomitant]
  10. ANTI-TUBERCULOUS AGENTS [Concomitant]

REACTIONS (2)
  - LIVER DISORDER [None]
  - PULMONARY TUBERCULOSIS [None]
